FAERS Safety Report 25087490 (Version 1)
Quarter: 2025Q1

REPORT INFORMATION
  Report Type: Spontaneous
  Country: US (occurrence: US)
  Receive Date: 20250318
  Receipt Date: 20250318
  Transmission Date: 20250409
  Serious: No
  Sender: APOTEX
  Company Number: US-APOTEX-2025AP002954

PATIENT
  Age: 56 Year
  Sex: Female

DRUGS (4)
  1. PONATINIB [Suspect]
     Active Substance: PONATINIB
     Indication: Philadelphia chromosome positive
     Dosage: 30 MILLIGRAM, QD
     Route: 065
  2. PONATINIB [Suspect]
     Active Substance: PONATINIB
     Indication: Acute lymphocytic leukaemia
  3. CYCLOPHOSPHAMIDE;CYTARABINE;DEXAMETHASONE;DOXORUBICIN;METHOTREXATE;VIN [Concomitant]
     Indication: Philadelphia chromosome positive
     Route: 065
  4. CYCLOPHOSPHAMIDE;CYTARABINE;DEXAMETHASONE;DOXORUBICIN;METHOTREXATE;VIN [Concomitant]
     Indication: Acute lymphocytic leukaemia

REACTIONS (1)
  - Angiopathy [Unknown]
